FAERS Safety Report 6511278-2 (Version None)
Quarter: 2009Q4

REPORT INFORMATION
  Report Type: 
  Country: None (occurrence: None)
  Receive Date: 20091222
  Receipt Date: 20090323
  Transmission Date: 20100525
  Serious: No
  Sender: FDA-Public Use
  Company Number: US-ASTRAZENECA-2009UW07295

PATIENT
  Age: 61 Year
  Sex: Male
  Weight: 72.6 kg

DRUGS (8)
  1. CRESTOR [Suspect]
     Dosage: 20 MG CUT IN HALF FOR 10 MG
     Route: 048
  2. AMLODIPINE [Concomitant]
  3. NITRO-DUR [Concomitant]
  4. NASACORT [Concomitant]
  5. PANTOPRAZOLE [Concomitant]
  6. GLIMEPIRIDE [Concomitant]
  7. LEVONOR [Concomitant]
  8. BYETTA [Concomitant]

REACTIONS (1)
  - DIARRHOEA [None]
